FAERS Safety Report 20353128 (Version 2)
Quarter: 2022Q1

REPORT INFORMATION
  Report Type: Spontaneous
  Country: US (occurrence: US)
  Receive Date: 20220119
  Receipt Date: 20220126
  Transmission Date: 20220423
  Serious: No
  Sender: FDA-Public Use
  Company Number: US-PFIZER INC-202200071665

PATIENT
  Age: 65 Year
  Sex: Female
  Weight: 61.23 kg

DRUGS (1)
  1. PAXLOVID [Suspect]
     Active Substance: NIRMATRELVIR\RITONAVIR
     Dosage: 2 TABLETS NIRMATRELVIR AND 1 TABLET RITONAVIR, TWICE A DAY
     Route: 048
     Dates: start: 20220113

REACTIONS (2)
  - Dysgeusia [Unknown]
  - Insomnia [Unknown]
